FAERS Safety Report 15836670 (Version 3)
Quarter: 2022Q1

REPORT INFORMATION
  Report Type: Spontaneous
  Country: NL (occurrence: NL)
  Receive Date: 20190117
  Receipt Date: 20220201
  Transmission Date: 20220423
  Serious: Yes (Life-Threatening, Hospitalization)
  Sender: FDA-Public Use
  Company Number: NL-AUROBINDO-AUR-APL-2019-000381

PATIENT
  Age: 52 Year
  Sex: Female
  Weight: 100 kg

DRUGS (7)
  1. QUETIAPINE [Suspect]
     Active Substance: QUETIAPINE
     Indication: Sleep disorder
     Dosage: 75 MILLIGRAM, ONCE A DAY (1X PER DAG 75 MILLIGRAM)
     Route: 048
     Dates: start: 2011
  2. QUETIAPINE [Suspect]
     Active Substance: QUETIAPINE
     Indication: Anxiety
     Dosage: 50 MILLIGRAM, ONCE A DAY
     Route: 065
     Dates: start: 2011
  3. QUETIAPINE [Suspect]
     Active Substance: QUETIAPINE
     Dosage: 75 MILLIGRAM, ONCE A DAY
     Route: 065
     Dates: start: 2018
  4. LEVOMEPROMAZINE [Suspect]
     Active Substance: LEVOMEPROMAZINE
     Indication: Sleep disorder
     Dosage: 50 GRAM, ONCE A DAY (1X PER DAG 50 MILLIGRAM)
     Route: 048
     Dates: start: 201810, end: 20181205
  5. DIAZEPAM [Concomitant]
     Active Substance: DIAZEPAM
     Indication: Product used for unknown indication
     Dosage: 1 DOSAGE FORM (25 MILLIGRAM PER DAG)
     Route: 065
  6. NORTRIPTYLINE [Concomitant]
     Active Substance: NORTRIPTYLINE
     Indication: Product used for unknown indication
     Dosage: 50 MILLIGRAM, ONCE A DAY
     Route: 065
  7. TRAZODONE HYDROCHLORIDE [Concomitant]
     Active Substance: TRAZODONE HYDROCHLORIDE
     Indication: Product used for unknown indication
     Dosage: 100 MILLIGRAM, ONCE A DAY
     Route: 065

REACTIONS (1)
  - Pulmonary embolism [Recovering/Resolving]

NARRATIVE: CASE EVENT DATE: 20181205
